FAERS Safety Report 13960201 (Version 2)
Quarter: 2017Q3

REPORT INFORMATION
  Report Type: Report from Study
  Country: US (occurrence: US)
  Receive Date: 20170912
  Receipt Date: 20170920
  Transmission Date: 20171128
  Serious: Yes (Hospitalization)
  Sender: FDA-Public Use
  Company Number: US-ROCHE-1989759

PATIENT
  Age: 42 Year
  Sex: Male
  Weight: 165.8 kg

DRUGS (39)
  1. ONDANSETRON [Concomitant]
     Active Substance: ONDANSETRON
     Dosage: PUSH AS NEEDED
     Route: 042
  2. ALLOPURINOL. [Concomitant]
     Active Substance: ALLOPURINOL
     Route: 048
     Dates: start: 20170824
  3. BACTRIM [Concomitant]
     Active Substance: SULFAMETHOXAZOLE\TRIMETHOPRIM
     Dosage: 800MG/160MG
     Route: 048
  4. NEULASTA [Concomitant]
     Active Substance: PEGFILGRASTIM
     Route: 065
     Dates: start: 20170828
  5. CIPRO [Concomitant]
     Active Substance: CIPROFLOXACIN HYDROCHLORIDE
  6. VENETOCLAX. [Suspect]
     Active Substance: VENETOCLAX
     Dosage: CYCLE 2
     Route: 048
     Dates: start: 20170802
  7. RITUXIMAB. [Suspect]
     Active Substance: RITUXIMAB
     Dosage: CYCLE 2
     Route: 042
     Dates: start: 20170802
  8. CARBOPLATIN. [Suspect]
     Active Substance: CARBOPLATIN
     Route: 042
     Dates: start: 20170802
  9. RITUXIMAB. [Suspect]
     Active Substance: RITUXIMAB
     Dosage: CYCLE 3
     Route: 042
     Dates: start: 20170824
  10. IFOSFAMIDE. [Suspect]
     Active Substance: IFOSFAMIDE
     Route: 042
     Dates: start: 20170802
  11. LISINOPRIL. [Concomitant]
     Active Substance: LISINOPRIL
     Indication: HYPERTENSION
     Route: 048
  12. LASIX [Concomitant]
     Active Substance: FUROSEMIDE
     Indication: HYPERTENSION
     Route: 065
  13. ZOFRAN [Concomitant]
     Active Substance: ONDANSETRON HYDROCHLORIDE
     Indication: NAUSEA
  14. AUGMENTIN [Concomitant]
     Active Substance: AMOXICILLIN\CLAVULANATE POTASSIUM
     Route: 065
  15. VENETOCLAX. [Suspect]
     Active Substance: VENETOCLAX
     Dosage: CYCLE 3 DATE OF LAST DOSE ADMINISTERED ON 02/SEP/2017
     Route: 048
     Dates: start: 20170824
  16. MESNA. [Suspect]
     Active Substance: MESNA
     Dosage: 4 HOURS AFTER COMPLETION OF IFOSFAMIDE ON DAY 3.
     Route: 042
     Dates: start: 20170826
  17. ETOPOSIDE. [Suspect]
     Active Substance: ETOPOSIDE
     Dosage: CYCLE 3
     Route: 042
     Dates: start: 20170824
  18. ETOPOSIDE. [Suspect]
     Active Substance: ETOPOSIDE
     Route: 042
     Dates: start: 20170825
  19. HYDROMORPHONE [Concomitant]
     Active Substance: HYDROMORPHONE
     Dosage: PUSH AS NEEDED
     Route: 042
  20. RITUXIMAB. [Suspect]
     Active Substance: RITUXIMAB
     Indication: DIFFUSE LARGE B-CELL LYMPHOMA RECURRENT
     Dosage: CYCLE 1
     Route: 042
     Dates: start: 20170714
  21. MESNA. [Suspect]
     Active Substance: MESNA
     Indication: DIFFUSE LARGE B-CELL LYMPHOMA RECURRENT
     Dosage: 4 HOURS AFTER COMPLETION OF IFOSFAMIDE ON DAY 3.
     Route: 042
     Dates: start: 20170804
  22. POLYETHYLENE GLYCOL [Concomitant]
     Active Substance: POLYETHYLENE GLYCOLS
     Route: 048
  23. HYDROCHLOROTHIAZIDE. [Concomitant]
     Active Substance: HYDROCHLOROTHIAZIDE
     Route: 048
  24. TYLENOL [Concomitant]
     Active Substance: ACETAMINOPHEN
     Indication: BACK PAIN
     Dosage: FOR CHRONIC BACK PAIN DUE TO PROLAPSED DISC 7 YEARS AGO
     Route: 065
  25. ABREVA [Concomitant]
     Active Substance: DOCOSANOL
     Indication: ORAL HERPES
  26. VENETOCLAX. [Suspect]
     Active Substance: VENETOCLAX
     Indication: DIFFUSE LARGE B-CELL LYMPHOMA RECURRENT
     Dosage: CYCLE 1
     Route: 048
     Dates: start: 20170713
  27. CARBOPLATIN. [Suspect]
     Active Substance: CARBOPLATIN
     Route: 042
     Dates: start: 20170825
  28. MESNA. [Suspect]
     Active Substance: MESNA
     Dosage: 4 HOURS AFTER COMPLETION OF IFOSFAMIDE ON DAY 3.
     Route: 042
     Dates: start: 20170816
  29. ETOPOSIDE. [Suspect]
     Active Substance: ETOPOSIDE
     Indication: DIFFUSE LARGE B-CELL LYMPHOMA RECURRENT
     Dosage: CYCLE 2
     Route: 042
     Dates: start: 20170802
  30. ETOPOSIDE. [Suspect]
     Active Substance: ETOPOSIDE
     Route: 042
     Dates: start: 20170826
  31. DIPHENHYDRAMINE. [Concomitant]
     Active Substance: DIPHENHYDRAMINE
     Dosage: ONCE
     Route: 048
  32. CARBOPLATIN. [Suspect]
     Active Substance: CARBOPLATIN
     Indication: DIFFUSE LARGE B-CELL LYMPHOMA RECURRENT
     Route: 042
     Dates: start: 20170714
  33. ETOPOSIDE. [Suspect]
     Active Substance: ETOPOSIDE
     Dosage: CYCLE 1 (DAYS 1-3)
     Route: 042
     Dates: start: 20170713
  34. ABREVA [Concomitant]
     Active Substance: DOCOSANOL
     Route: 061
  35. IFOSFAMIDE. [Suspect]
     Active Substance: IFOSFAMIDE
     Indication: DIFFUSE LARGE B-CELL LYMPHOMA RECURRENT
     Dosage: CYCLE 1 OVER 24 HRS DAY 2 TO DAY 3
     Route: 042
     Dates: start: 20170714
  36. IFOSFAMIDE. [Suspect]
     Active Substance: IFOSFAMIDE
     Route: 042
     Dates: start: 20170825
  37. ACETAMINOPHEN. [Concomitant]
     Active Substance: ACETAMINOPHEN
     Dosage: ONCE
     Route: 048
  38. ACYCLOVIR. [Concomitant]
     Active Substance: ACYCLOVIR
     Indication: ORAL HERPES
     Route: 048
  39. HEPARIN [Concomitant]
     Active Substance: HEPARIN SODIUM
     Route: 058

REACTIONS (2)
  - Cholelithiasis [Unknown]
  - Gallbladder enlargement [Unknown]

NARRATIVE: CASE EVENT DATE: 20170904
